FAERS Safety Report 8337656-7 (Version None)
Quarter: 2012Q2

REPORT INFORMATION
  Report Type: 
  Country: None (occurrence: None)
  Receive Date: 20120504
  Receipt Date: 20120504
  Transmission Date: 20120825
  Serious: Yes (Death)
  Sender: FDA-Public Use
  Company Number: None

PATIENT
  Age: 51 Year
  Sex: Male
  Weight: 104.32 kg

DRUGS (1)
  1. MERIDIA [Suspect]
     Indication: WEIGHT CONTROL
     Dosage: |DOSAGETEXT: ?||STRENGTH: ?||FREQ: ?||ROUTE: ORAL|
     Route: 048
     Dates: start: 20060301, end: 20060501

REACTIONS (1)
  - MYOCARDIAL INFARCTION [None]
